FAERS Safety Report 6555113-5 (Version None)
Quarter: 2010Q1

REPORT INFORMATION
  Report Type: 
  Country: None (occurrence: None)
  Receive Date: 20100126
  Receipt Date: 20100126
  Transmission Date: 20100710
  Serious: Yes (Life-Threatening)
  Sender: FDA-Public Use
  Company Number: None

PATIENT
  Sex: Female
  Weight: 4.1731 kg

DRUGS (1)
  1. HYOSYNE 0.125 MG/ML DROG. [Suspect]
     Indication: ABDOMINAL PAIN
     Dosage: 0.125 EVERY 4 HOURS
     Dates: start: 20091229

REACTIONS (1)
  - DYSPNOEA [None]
